FAERS Safety Report 5897511-9 (Version None)
Quarter: 2008Q3

REPORT INFORMATION
  Report Type: 
  Country: None (occurrence: None)
  Receive Date: 20080924
  Receipt Date: 20080924
  Transmission Date: 20090109
  Serious: No
  Sender: FDA-Public Use
  Company Number: None

PATIENT
  Age: 47 Year
  Sex: Male

DRUGS (8)
  1. ATRIPLA [Suspect]
     Dates: start: 20060722, end: 20060830
  2. NAPROXEN [Concomitant]
  3. DRONABINOL [Concomitant]
  4. M.V.I. [Concomitant]
  5. OXYCODONE HCL [Concomitant]
  6. SILDENAFIL CITRATE [Concomitant]
  7. AMBIEN [Concomitant]
  8. LOTRISONE [Concomitant]

REACTIONS (8)
  - ARTHRALGIA [None]
  - DECREASED APPETITE [None]
  - DRUG TOXICITY [None]
  - FATIGUE [None]
  - HEPATIC FIBROSIS [None]
  - LIVER INJURY [None]
  - MYALGIA [None]
  - WEIGHT DECREASED [None]
